FAERS Safety Report 19810246 (Version 1)
Quarter: 2021Q3

REPORT INFORMATION
  Report Type: Spontaneous
  Country: GB (occurrence: GB)
  Receive Date: 20210909
  Receipt Date: 20210909
  Transmission Date: 20211014
  Serious: Yes (Other)
  Sender: FDA-Public Use
  Company Number: GB-MYLANLABS-2021M1058750

PATIENT
  Age: 79 Year
  Sex: Male
  Weight: 89 kg

DRUGS (13)
  1. ENTRESTO [Concomitant]
     Active Substance: SACUBITRIL\VALSARTAN
     Dosage: 1 DOSAGE FORM, BID (ONE TAKE TWICE A DAY)
     Dates: start: 20210309, end: 20210813
  2. CHLORHEXIDINE ACETATE [Concomitant]
     Active Substance: CHLORHEXIDINE ACETATE
     Dosage: USE AS DIRECTED
     Dates: start: 20200310, end: 20210813
  3. WARFARIN SODIUM. [Concomitant]
     Active Substance: WARFARIN SODIUM
     Dosage: TAKE AS ADVISED BY HOSPITAL
     Dates: start: 20200821, end: 20210813
  4. ROSUVASTATIN. [Concomitant]
     Active Substance: ROSUVASTATIN
     Dosage: 1 DOSAGE FORM, QD (TAKE ONE DAILY)
     Dates: start: 20201102, end: 20210813
  5. NITROFURANTOIN. [Suspect]
     Active Substance: NITROFURANTOIN
     Indication: URINE ABNORMALITY
     Dosage: 100 MILLIGRAM, BID (TAKE ONE TWICE DAILY)
     Dates: start: 20210621, end: 20210628
  6. DIGOXIN. [Concomitant]
     Active Substance: DIGOXIN
     Dosage: 1 DOSAGE FORM, QD (TAKE ONE DAILY)
     Dates: start: 20201102, end: 20210813
  7. FUROSEMIDE. [Concomitant]
     Active Substance: FUROSEMIDE
     Dosage: 1 DOSAGE FORM, QD (TAKE 1 IN THE MORNING)
     Dates: start: 20210309, end: 20210813
  8. ALLOPURINOL. [Concomitant]
     Active Substance: ALLOPURINOL
     Dosage: TAKE ONE DAILY
     Dates: start: 20201102, end: 20210813
  9. BISOPROLOL [Concomitant]
     Active Substance: BISOPROLOL
     Dosage: 1 DOSAGE FORM, BID (TAKE ONE TWICE A DAY)
     Dates: start: 20201102, end: 20210813
  10. EPLERENONE. [Concomitant]
     Active Substance: EPLERENONE
     Dosage: 0.5 DOSAGE FORM, QD (HALF TO BE TAKEN DAILY)
     Dates: start: 20201102, end: 20210813
  11. CARBIMAZOLE [Concomitant]
     Active Substance: CARBIMAZOLE
     Dosage: 1 DOSAGE FORM, QD (TAKE ONE DAILY)
     Dates: start: 20210519, end: 20210813
  12. GLYCERYL TRINITRATE [Concomitant]
     Active Substance: NITROGLYCERIN
     Dosage: 1 DOSAGE FORM, PRN (ONE PUFF AS NEEDED)
     Dates: start: 20210519, end: 20210813
  13. INSTILLAGEL [Concomitant]
     Active Substance: CHLORHEXIDINE GLUCONATE\LIDOCAINE HYDROCHLORIDE
     Dosage: USE AS DIRECTED
     Dates: start: 20200303, end: 20210813

REACTIONS (1)
  - Tremor [Recovered/Resolved]

NARRATIVE: CASE EVENT DATE: 20210827
